FAERS Safety Report 26096087 (Version 1)
Quarter: 2025Q4

REPORT INFORMATION
  Report Type: Report from Study
  Country: CA (occurrence: CA)
  Receive Date: 20251127
  Receipt Date: 20251127
  Transmission Date: 20260119
  Serious: Yes (Death)
  Sender: IPSEN BIOPHARMACEUTICALS, INC.
  Company Number: CA-IPSEN Group, Research and Development-2025-29242

PATIENT
  Age: 91 Year
  Sex: Male

DRUGS (14)
  1. LANREOTIDE ACETATE [Suspect]
     Active Substance: LANREOTIDE ACETATE
     Indication: Gastroenteropancreatic neuroendocrine tumour disease
     Dosage: DEEP SUBCUTANEOUS
     Route: 058
     Dates: start: 20180315
  2. LANREOTIDE ACETATE [Suspect]
     Active Substance: LANREOTIDE ACETATE
     Dosage: DEEP SUBCUTANEOUS
     Route: 058
     Dates: start: 20251027, end: 20251027
  3. ASPIRIN [Concomitant]
     Active Substance: ASPIRIN
  4. TAMSULOSIN [Concomitant]
     Active Substance: TAMSULOSIN
     Dosage: HS
  5. RAMIPRIL [Concomitant]
     Active Substance: RAMIPRIL
     Dosage: AT AM
  6. VITALUX [ASCORBIC ACID;BETACAROTENE;COPPER;RIBOFLAVIN;SELENIUM;TOCOFER [Concomitant]
     Indication: Supplementation therapy
  7. AMLODIPINE [Concomitant]
     Active Substance: AMLODIPINE BESYLATE
     Dosage: IN AM
  8. JANUMET [Concomitant]
     Active Substance: METFORMIN HYDROCHLORIDE\SITAGLIPTIN PHOSPHATE
     Dosage: IN AM AND HS
  9. CHOLECALCIFEROL [Concomitant]
     Active Substance: CHOLECALCIFEROL
  10. DUTASTERIDE [Concomitant]
     Active Substance: DUTASTERIDE
     Dosage: IN AM
  11. PANTOPRAZOLE [Concomitant]
     Active Substance: PANTOPRAZOLE
     Dosage: IN AM
  12. DOCUSATE [Concomitant]
     Active Substance: DOCUSATE
     Dosage: IN AM
  13. GLICLAZIDE [Concomitant]
     Active Substance: GLICLAZIDE
  14. BASAGLAR [Concomitant]
     Active Substance: INSULIN GLARGINE
     Dosage: 16 UNITS ONCE A DAY AT HS

REACTIONS (1)
  - Death [Fatal]

NARRATIVE: CASE EVENT DATE: 20251113
